FAERS Safety Report 21568267 (Version 1)
Quarter: 2022Q4

REPORT INFORMATION
  Report Type: Spontaneous
  Country: US (occurrence: None)
  Receive Date: 20221107
  Receipt Date: 20221107
  Transmission Date: 20230113
  Serious: Yes (Hospitalization)
  Sender: FDA-Public Use
  Company Number: None

PATIENT
  Age: 67 Year
  Sex: Male

DRUGS (2)
  1. CYCLOSPORINE MODIFIED [Suspect]
     Active Substance: CYCLOSPORINE
     Indication: Renal transplant
     Dosage: TAKE 5 CAPSULES (125 MG TOTAL) BY MOUTH EVERY 12 HOURS?
     Route: 048
     Dates: start: 20201007
  2. CYCLOSPORINE MODIFIED [Suspect]
     Active Substance: CYCLOSPORINE
     Dosage: FREQUENCY : EVERY 12 HOURS;?
     Route: 048

REACTIONS (1)
  - Scrotal cyst [None]

NARRATIVE: CASE EVENT DATE: 20221107
